FAERS Safety Report 23947462 (Version 1)
Quarter: 2024Q2

REPORT INFORMATION
  Report Type: Spontaneous
  Country: NZ (occurrence: NZ)
  Receive Date: 20240606
  Receipt Date: 20240606
  Transmission Date: 20240716
  Serious: Yes (Other)
  Sender: FDA-Public Use
  Company Number: NZ-TEVA-VS-3202987

PATIENT
  Age: 36 Year
  Sex: Male

DRUGS (1)
  1. FLUOXETINE [Suspect]
     Active Substance: FLUOXETINE HYDROCHLORIDE
     Indication: Product used for unknown indication
     Route: 065

REACTIONS (9)
  - Erectile dysfunction [Unknown]
  - Cognitive disorder [Unknown]
  - Genital anaesthesia [Unknown]
  - Anorgasmia [Unknown]
  - Fatigue [Unknown]
  - Loss of libido [Unknown]
  - Alcohol problem [Unknown]
  - Infertility [Unknown]
  - Hypoaesthesia [Unknown]
